FAERS Safety Report 10582724 (Version 3)
Quarter: 2014Q4

REPORT INFORMATION
  Report Type: Report from Study
  Country: BR (occurrence: BR)
  Receive Date: 20141113
  Receipt Date: 20141201
  Transmission Date: 20150529
  Serious: Yes (Death, Hospitalization, Other)
  Sender: FDA-Public Use
  Company Number: BR-BRISTOL-MYERS SQUIBB COMPANY-21571773

PATIENT
  Age: 39 Year
  Sex: Male

DRUGS (1)
  1. ORENCIA [Suspect]
     Active Substance: ABATACEPT
     Indication: RHEUMATOID ARTHRITIS
     Route: 042
     Dates: start: 20141029

REACTIONS (3)
  - Arthropathy [Unknown]
  - Pulmonary embolism [Fatal]
  - Venous thrombosis [Fatal]

NARRATIVE: CASE EVENT DATE: 20141031
